FAERS Safety Report 4508542-5 (Version None)
Quarter: 2004Q4

REPORT INFORMATION
  Report Type: 
  Country: None (occurrence: None)
  Receive Date: 20041123
  Receipt Date: 20040323
  Transmission Date: 20050328
  Serious: No
  Sender: FDA-Public Use
  Company Number: US-GLAXOSMITHKLINE-A0504063A

PATIENT

DRUGS (4)
  1. WELLBUTRIN [Suspect]
     Dosage: 100MG TWICE PER DAY
     Route: 048
  2. DEPAKOTE [Concomitant]
  3. AMBIEN [Concomitant]
  4. LUVOX [Concomitant]

REACTIONS (1)
  - DYSARTHRIA [None]
